FAERS Safety Report 8422833 (Version 2)
Quarter: 2013Q1

REPORT INFORMATION
  Report Type: Spontaneous
  Country: US (occurrence: US)
  Receive Date: 20120223
  Receipt Date: 20130213
  Transmission Date: 20140127
  Serious: Yes (Death, Hospitalization)
  Sender: FDA-Public Use
  Company Number: US-GLAXOSMITHKLINE-A0829287A

PATIENT
  Age: 47 Year
  Sex: Male
  Weight: 227.3 kg

DRUGS (8)
  1. AVANDIA [Suspect]
     Indication: TYPE 2 DIABETES MELLITUS
     Dosage: 4MG TWICE PER DAY
     Route: 048
     Dates: start: 200505, end: 200808
  2. METOPROLOL [Concomitant]
  3. ALBUTEROL [Concomitant]
  4. COMBIVENT [Concomitant]
  5. GABAPENTIN [Concomitant]
  6. INSULIN [Concomitant]
  7. LIPITOR [Concomitant]
  8. LISINOPRIL [Concomitant]

REACTIONS (6)
  - Myocardial infarction [Fatal]
  - Cardiac failure congestive [Unknown]
  - Chronic obstructive pulmonary disease [Unknown]
  - Skin ulcer [Unknown]
  - Leg amputation [Unknown]
  - Cardiovascular disorder [Unknown]
